FAERS Safety Report 10092236 (Version 1)
Quarter: 2014Q2

REPORT INFORMATION
  Report Type: Spontaneous
  Country: US (occurrence: US)
  Receive Date: 20140421
  Receipt Date: 20140421
  Transmission Date: 20141212
  Serious: No
  Sender: FDA-Public Use
  Company Number: US-SANOFI-AVENTIS-2013SA029347

PATIENT
  Age: 68 Year
  Sex: Female

DRUGS (16)
  1. ALLEGRA [Suspect]
  2. GABAPENTIN [Concomitant]
     Route: 048
  3. LOPID [Concomitant]
     Route: 048
  4. FLONASE [Concomitant]
     Indication: HYPERSENSITIVITY
  5. VYTORIN [Concomitant]
     Dosage: 10MG/80MG TABLET 1 PO QHS
  6. NEXIUM [Concomitant]
     Route: 048
  7. LEXAPRO [Concomitant]
     Route: 048
  8. SYMBICORT [Concomitant]
     Dosage: 160MCG/4.5MCG ORAL INHALER 2 INHALATION BY MOUTH BID
     Route: 055
  9. NORCO [Concomitant]
     Indication: PAIN
     Dosage: 10MG/ 325MG
     Route: 048
  10. VALIUM [Concomitant]
     Indication: ANXIETY
     Route: 048
  11. DIAZEPAM [Concomitant]
     Indication: ANXIETY
     Route: 048
  12. ALBUTEROL [Concomitant]
     Indication: DYSPNOEA
     Dosage: 0.083% NEBULIZER SOLUTION 1 VIALS BY NEBULIZER 4-6 HOURS
  13. ALL OTHER THERAPEUTIC PRODUCTS [Concomitant]
  14. ANTI-SMOKING AGENTS [Concomitant]
     Dosage: 0.5MG/1MG
  15. NAPROXEN [Concomitant]
  16. CALTRATE + D [Concomitant]

REACTIONS (1)
  - Headache [Unknown]
